FAERS Safety Report 9548314 (Version 1)
Quarter: 2013Q2

REPORT INFORMATION
  Report Type: Spontaneous
  Country: US (occurrence: None)
  Receive Date: 20130606
  Receipt Date: 20130606
  Transmission Date: 20140414
  Serious: Yes (Other)
  Sender: FDA-Public Use
  Company Number: 2013PROUSA02722

PATIENT
  Age: 57 Year
  Sex: Male
  Weight: 97.9 kg

DRUGS (15)
  1. PROVENGE (SIPULEUCEL-T) SUSPENSION, 250ML [Suspect]
     Indication: PROSTATE CANCER METASTATIC
     Route: 042
     Dates: start: 20121116, end: 20121116
  2. LEXAPRO (ESCITALOPRAM OXALATE) [Concomitant]
  3. LIPITOR (ATORVASTATIN CALCIUM) [Concomitant]
  4. OMEPRAZOLE (OMEPRAZOLE) [Concomitant]
  5. VALIUM (DIAZEPAM) [Concomitant]
  6. METOPROLOL [Concomitant]
  7. GABAPENTIN 1 A PHARMA (GABAPENTIN) [Concomitant]
  8. VANTAS (HISTRELIN ACETATE) [Concomitant]
  9. XGEVA (DENOSUMAB) [Concomitant]
  10. LEVOTHYROXINE (LEVOTHYROXINE SODIUM) [Concomitant]
  11. PROMETHAZINE (PROMETHAZINE HYDROCHLORIDE) [Concomitant]
  12. ASPIRIN (ACETYLSALICYLIC ACID) [Concomitant]
  13. TAMSULOSIN (TAMSULOSIN) [Concomitant]
  14. RAMPRIL (RAMIPRIL) [Concomitant]
  15. NILANDRON (NILUTAMIDE) [Concomitant]

REACTIONS (3)
  - Disease progression [None]
  - Nausea [None]
  - Fatigue [None]
